FAERS Safety Report 8848183 (Version 4)
Quarter: 2013Q1

REPORT INFORMATION
  Report Type: Spontaneous
  Country: US (occurrence: US)
  Receive Date: 20121018
  Receipt Date: 20130322
  Transmission Date: 20140127
  Serious: Yes (Hospitalization, Disabling, Other)
  Sender: FDA-Public Use
  Company Number: US-009507513-1210USA006564

PATIENT
  Sex: Female
  Weight: 52.15 kg

DRUGS (6)
  1. FOSAMAX [Suspect]
     Indication: OSTEOPOROSIS
     Dosage: 70 MG, QW
     Route: 048
     Dates: start: 20010601, end: 201110
  2. FOSAMAX [Suspect]
     Dosage: 70 MG, QM
     Route: 048
  3. FOSAMAX PLUS D [Suspect]
     Indication: OSTEOPOROSIS
     Dosage: 70MG/2800 IU, UNK
     Route: 048
     Dates: start: 20060710, end: 200809
  4. ALENDRONATE SODIUM [Suspect]
     Indication: OSTEOPOROSIS
     Dosage: 70 MG, UNK
     Dates: start: 20090505, end: 201110
  5. ALENDRONATE SODIUM [Suspect]
     Indication: OSTEOPOROSIS
     Dosage: 70 MG, UNK
     Dates: start: 20090505, end: 201110
  6. CALCIUM (UNSPECIFIED) (+) VITAMIN D (UNSPECIFIED) [Concomitant]
     Indication: OSTEOPOROSIS
     Dosage: 500 MG, BID

REACTIONS (32)
  - Intramedullary rod insertion [Unknown]
  - Medical device implantation [Unknown]
  - Osteoporosis [Unknown]
  - Fall [Unknown]
  - Prolapse repair [Unknown]
  - Plasma cell myeloma [Unknown]
  - Femur fracture [Unknown]
  - Femur fracture [Unknown]
  - Femur fracture [Unknown]
  - Anxiety [Unknown]
  - Depression [Unknown]
  - Hand fracture [Unknown]
  - Inappropriate schedule of drug administration [Unknown]
  - Body height decreased [Unknown]
  - Muscular weakness [Unknown]
  - Hypercalcaemia [Unknown]
  - Coeliac disease [Unknown]
  - Hyperthyroidism [Unknown]
  - Biopsy breast [Unknown]
  - Endometriosis [Unknown]
  - Hereditary angioedema [Unknown]
  - Cystocele [Unknown]
  - Presbyopia [Unknown]
  - Diverticulum [Unknown]
  - Irritable bowel syndrome [Unknown]
  - Kyphosis [Unknown]
  - Lordosis [Unknown]
  - Spinal osteoarthritis [Unknown]
  - Osteoarthritis [Unknown]
  - Pyrexia [Unknown]
  - Pruritus [Unknown]
  - Oedema peripheral [Unknown]
